FAERS Safety Report 21687296 (Version 1)
Quarter: 2022Q4

REPORT INFORMATION
  Report Type: Spontaneous
  Country: GR (occurrence: GR)
  Receive Date: 20221206
  Receipt Date: 20221206
  Transmission Date: 20230112
  Serious: Yes (Hospitalization, Other)
  Sender: FDA-Public Use
  Company Number: GR-009507513-2212GRC000076

PATIENT
  Age: 64 Year
  Sex: Male

DRUGS (1)
  1. BCG LIVE [Suspect]
     Active Substance: BACILLUS CALMETTE-GUERIN SUBSTRAIN TICE LIVE ANTIGEN
     Indication: Transitional cell carcinoma
     Dosage: SIX BCG INSTILLATIONS
     Route: 043
     Dates: start: 2019, end: 2019

REACTIONS (1)
  - Haemophagocytic lymphohistiocytosis [Recovering/Resolving]
